FAERS Safety Report 7685183-2 (Version None)
Quarter: 2011Q3

REPORT INFORMATION
  Report Type: 
  Country: None (occurrence: None)
  Receive Date: 20110816
  Receipt Date: 20110805
  Transmission Date: 20111222
  Serious: Yes (Other)
  Sender: FDA-Public Use
  Company Number: US-CELGENEUS-163-21880-11081096

PATIENT
  Sex: Female

DRUGS (11)
  1. FISH OIL [Concomitant]
     Indication: SUPPLEMENTATION THERAPY
     Route: 065
  2. LUTIN [Concomitant]
     Route: 065
  3. VALACYCLOVIR [Concomitant]
     Dosage: 500 MILLIGRAM
     Route: 065
  4. POTASSIUM CHLORIDE [Concomitant]
     Dosage: 20 MILLIGRAM/SQ. METER
     Route: 065
  5. PLATELETS [Concomitant]
     Route: 041
  6. OFATUMUMAB [Suspect]
     Indication: NON-HODGKIN'S LYMPHOMA
     Dosage: 1 GRAM
     Route: 041
     Dates: start: 20100526, end: 20100713
  7. PENTAMIDINE ISETHIONATE [Concomitant]
     Dosage: 300 MILLIGRAM
     Route: 065
  8. WHOLE BLOOD [Concomitant]
     Route: 041
  9. ASPIRIN [Concomitant]
     Route: 065
  10. LASIX [Concomitant]
     Dosage: 20 MILLIGRAM
     Route: 065
  11. REVLIMID [Suspect]
     Indication: NON-HODGKIN'S LYMPHOMA
     Dosage: 15 MILLIGRAM
     Route: 048
     Dates: start: 20100526, end: 20101012

REACTIONS (1)
  - MUELLER'S MIXED TUMOUR [None]
